FAERS Safety Report 6732731-2 (Version None)
Quarter: 2010Q2

REPORT INFORMATION
  Report Type: 
  Country: None (occurrence: None)
  Receive Date: 20100519
  Receipt Date: 20100511
  Transmission Date: 20101027
  Serious: Yes (Hospitalization)
  Sender: FDA-Public Use
  Company Number: US-GENENTECH-279564

PATIENT
  Sex: Male
  Weight: 76.644 kg

DRUGS (1)
  1. NUTROPIN AQ [Suspect]
     Indication: GROWTH RETARDATION
     Dosage: 3.8 MG, QD
     Route: 058
     Dates: start: 20050111, end: 20090130

REACTIONS (1)
  - GUILLAIN-BARRE SYNDROME [None]
